FAERS Safety Report 10244399 (Version 1)
Quarter: 2014Q2

REPORT INFORMATION
  Report Type: Report from Study
  Country: US (occurrence: US)
  Receive Date: 20140618
  Receipt Date: 20140618
  Transmission Date: 20141212
  Serious: Yes (Other)
  Sender: FDA-Public Use
  Company Number: US-PURDUE-USA-2014-0114914

PATIENT
  Age: 52 Year
  Sex: Female

DRUGS (4)
  1. OXY CR TAB [Suspect]
     Indication: MYALGIA
     Dosage: 80 MG, TID
     Route: 048
     Dates: start: 20140515
  2. OXY CR TAB [Suspect]
     Indication: BACK PAIN
  3. OXY CR TAB [Suspect]
     Indication: PAIN
  4. OXY CR TAB [Suspect]
     Indication: INTERVERTEBRAL DISC DEGENERATION

REACTIONS (1)
  - Knee operation [Unknown]
